FAERS Safety Report 9986945 (Version 1)
Quarter: 2014Q1

REPORT INFORMATION
  Report Type: Report from Study
  Country: US (occurrence: US)
  Receive Date: 20140307
  Receipt Date: 20140307
  Transmission Date: 20141002
  Serious: No
  Sender: FDA-Public Use
  Company Number: US-ABBVIE-13P-163-1080399-00

PATIENT
  Age: 21 Year
  Sex: Male
  Weight: 75.36 kg

DRUGS (2)
  1. HUMIRA [Suspect]
     Indication: PSORIASIS
     Dates: start: 20130326
  2. NOVOLOG [Concomitant]
     Indication: DIABETES MELLITUS
     Dosage: FLEX PEN

REACTIONS (2)
  - Acne [Not Recovered/Not Resolved]
  - Subcutaneous abscess [Not Recovered/Not Resolved]
